FAERS Safety Report 12491745 (Version 1)
Quarter: 2016Q2

REPORT INFORMATION
  Report Type: Spontaneous
  Country: US (occurrence: None)
  Receive Date: 20160622
  Receipt Date: 20160622
  Transmission Date: 20160815
  Serious: No
  Sender: FDA-Public Use
  Company Number: None

PATIENT
  Age: 71 Year
  Sex: Female
  Weight: 76.66 kg

DRUGS (3)
  1. TRANSDERM SCOP [Suspect]
     Active Substance: SCOPOLAMINE
     Indication: MOTION SICKNESS
     Dosage: 1 PATCH(ES) 1 EVERY 3 DAYS APPLIED AS MEDICATED PATCH TO SKIN
     Route: 061
     Dates: start: 20160605, end: 20160619
  2. SENIOR MULTIVITAMIN [Concomitant]
  3. VITAMIN D [Concomitant]
     Active Substance: CHOLECALCIFEROL

REACTIONS (10)
  - Pulse abnormal [None]
  - Dizziness [None]
  - Eye swelling [None]
  - Headache [None]
  - Abdominal discomfort [None]
  - Swelling face [None]
  - Product adhesion issue [None]
  - Dry mouth [None]
  - Vomiting [None]
  - Amnesia [None]

NARRATIVE: CASE EVENT DATE: 20160605
